FAERS Safety Report 6778067-5 (Version None)
Quarter: 2010Q2

REPORT INFORMATION
  Report Type: 
  Country: None (occurrence: None)
  Receive Date: 20100618
  Receipt Date: 20100608
  Transmission Date: 20101027
  Serious: No
  Sender: FDA-Public Use
  Company Number: US-BIOGENIDEC-2010BI020041

PATIENT
  Sex: Female

DRUGS (1)
  1. TYSABRI [Suspect]
     Indication: MULTIPLE SCLEROSIS
     Route: 042
     Dates: start: 20050207, end: 20050207

REACTIONS (4)
  - BALANCE DISORDER [None]
  - DEPRESSION [None]
  - OPTIC NERVE DISORDER [None]
  - VISUAL IMPAIRMENT [None]
